FAERS Safety Report 18393752 (Version 2)
Quarter: 2020Q4

REPORT INFORMATION
  Report Type: Spontaneous
  Country: JP (occurrence: JP)
  Receive Date: 20201016
  Receipt Date: 20201230
  Transmission Date: 20210114
  Serious: Yes (Other)
  Sender: FDA-Public Use
  Company Number: JP-ELI_LILLY_AND_COMPANY-JP202002003522

PATIENT
  Age: 20 Year
  Sex: Female

DRUGS (7)
  1. OPSUMIT [Suspect]
     Active Substance: MACITENTAN
     Indication: PRODUCT USED FOR UNKNOWN INDICATION
     Dosage: UNK, UNKNOWN
     Route: 048
  2. LASIX [Concomitant]
     Active Substance: FUROSEMIDE
     Indication: PRODUCT USED FOR UNKNOWN INDICATION
     Dosage: 25 MG, DAILY
  3. RENIVACE [Concomitant]
     Active Substance: ENALAPRIL
     Indication: PRODUCT USED FOR UNKNOWN INDICATION
     Dosage: 2.5 MG, DAILY
  4. ADCIRCA [Suspect]
     Active Substance: TADALAFIL
     Indication: VENTRICULAR SEPTAL DEFECT
     Dosage: 20 MG, DAILY
     Route: 048
     Dates: start: 20191129, end: 20191130
  5. DIGOXIN. [Concomitant]
     Active Substance: DIGOXIN
     Indication: PRODUCT USED FOR UNKNOWN INDICATION
     Dosage: 0.1 MG, DAILY
  6. ACARDI [Concomitant]
     Active Substance: PIMOBENDAN
     Indication: PRODUCT USED FOR UNKNOWN INDICATION
     Dosage: 0.3 MG, DAILY
  7. URINORM [BENZBROMARONE] [Concomitant]
     Indication: PRODUCT USED FOR UNKNOWN INDICATION
     Dosage: 25 MG, DAILY

REACTIONS (3)
  - Off label use [Unknown]
  - Pain in extremity [Recovered/Resolved]
  - Pericardial effusion [Unknown]

NARRATIVE: CASE EVENT DATE: 20191129
